FAERS Safety Report 4611030-9 (Version None)
Quarter: 2005Q1

REPORT INFORMATION
  Report Type: 
  Country: None (occurrence: None)
  Receive Date: 20050316
  Receipt Date: 20050316
  Transmission Date: 20050727
  Serious: Yes (Hospitalization)
  Sender: FDA-Public Use
  Company Number: None

PATIENT
  Age: 70 Year
  Sex: Male

DRUGS (13)
  1. SPIRONOLACTONE [Suspect]
     Indication: CARDIAC FAILURE CONGESTIVE
     Dosage: 25 MG PO DAILY
     Route: 048
  2. NAPROXEN [Suspect]
     Indication: PAIN IN EXTREMITY
     Dosage: 500 MG PO BID
     Route: 048
  3. ALBUTEROL [Concomitant]
  4. ASPIRIN [Concomitant]
  5. CAPTOPRIL [Concomitant]
  6. DIGOXIN [Concomitant]
  7. FELODIPINE [Concomitant]
  8. FUROSEMIDE [Concomitant]
  9. PERCOCET [Concomitant]
  10. SIMVASTATIN [Concomitant]
  11. BACTRIM [Concomitant]
  12. TRAMADOL HCL [Concomitant]
  13. VALSARTAN [Concomitant]

REACTIONS (6)
  - BLOOD POTASSIUM INCREASED [None]
  - DYSPNOEA [None]
  - HYPOTENSION [None]
  - MENTAL STATUS CHANGES [None]
  - RENAL FAILURE ACUTE [None]
  - SOMNOLENCE [None]
